FAERS Safety Report 12959116 (Version 1)
Quarter: 2016Q4

REPORT INFORMATION
  Report Type: Spontaneous
  Country: US (occurrence: US)
  Receive Date: 20161121
  Receipt Date: 20161121
  Transmission Date: 20170207
  Serious: No
  Sender: FDA-Public Use
  Company Number: US-JNJFOC-20161103499

PATIENT
  Age: 73 Year
  Sex: Male
  Weight: 85.73 kg

DRUGS (2)
  1. DARZALEX [Suspect]
     Active Substance: DARATUMUMAB
     Indication: PLASMA CELL MYELOMA
     Dosage: INFUSION WAS STOPPED AND ALBUTEROL INHALER AND OTHER MEDS WERE GIVEN AND INFUSION WAS RESTARTED.
     Route: 042
     Dates: start: 20161020, end: 20161020
  2. DARZALEX [Suspect]
     Active Substance: DARATUMUMAB
     Indication: PLASMA CELL MYELOMA
     Route: 042
     Dates: start: 20161027

REACTIONS (3)
  - Infusion related reaction [Recovered/Resolved]
  - Chest discomfort [Recovered/Resolved]
  - Weight decreased [Unknown]

NARRATIVE: CASE EVENT DATE: 20161020
